FAERS Safety Report 10903900 (Version 1)
Quarter: 2015Q1

REPORT INFORMATION
  Report Type: Other
  Country: US (occurrence: US)
  Receive Date: 20150311
  Receipt Date: 20150311
  Transmission Date: 20150721
  Serious: Yes (Other)
  Sender: FDA-Public Use
  Company Number: US-SHIRE-US201501799

PATIENT
  Sex: Female

DRUGS (2)
  1. CINRYZE [Suspect]
     Active Substance: HUMAN C1-ESTERASE INHIBITOR
     Indication: HEREDITARY ANGIOEDEMA
     Dosage: 1000 UNITS OTHER (EVERY 3 TO 4 DAYS)
     Route: 042
     Dates: start: 20101108
  2. CINRYZE [Suspect]
     Active Substance: HUMAN C1-ESTERASE INHIBITOR
     Indication: PROPHYLAXIS

REACTIONS (5)
  - Pharyngeal oedema [Unknown]
  - Product use issue [Unknown]
  - Infection [Unknown]
  - Tongue oedema [Unknown]
  - Inappropriate schedule of drug administration [Unknown]
